FAERS Safety Report 22598558 (Version 7)
Quarter: 2024Q1

REPORT INFORMATION
  Report Type: Spontaneous
  Country: US (occurrence: US)
  Receive Date: 20230614
  Receipt Date: 20240320
  Transmission Date: 20240410
  Serious: Yes (Other)
  Sender: FDA-Public Use
  Company Number: US-BRISTOL-MYERS SQUIBB COMPANY-2023-083398

PATIENT
  Age: 65 Year
  Sex: Female
  Weight: 54.43 kg

DRUGS (17)
  1. REVLIMID [Suspect]
     Active Substance: LENALIDOMIDE
     Indication: Marginal zone lymphoma
     Dosage: ONCE DAILY
     Route: 048
     Dates: start: 20230428
  2. REVLIMID [Suspect]
     Active Substance: LENALIDOMIDE
     Indication: Follicular lymphoma
     Dosage: ONCE DAILY
     Route: 048
     Dates: start: 20230501
  3. REVLIMID [Suspect]
     Active Substance: LENALIDOMIDE
     Dosage: 21D ON 7D OFF
     Route: 048
     Dates: start: 20230517
  4. REVLIMID [Suspect]
     Active Substance: LENALIDOMIDE
     Dosage: 21D ON 7D OFF
     Route: 048
     Dates: start: 20230607
  5. RITUXIMAB [Suspect]
     Active Substance: RITUXIMAB
     Indication: Lymphoma
     Dosage: 17-MAY-2023 D1 C1 RITUXIMAB; 25-MAY-2023 D8 C1 RITUXIMAB; 31-MAY-2023 D15 RITUXIMAB;  07-JUN-2023 D2
     Route: 042
     Dates: start: 20230517, end: 20231018
  6. DEXAMETHASONE [Concomitant]
     Active Substance: DEXAMETHASONE
     Indication: Product used for unknown indication
     Route: 042
     Dates: start: 20230517, end: 20231018
  7. AUGMENTIN [Concomitant]
     Active Substance: AMOXICILLIN\CLAVULANATE POTASSIUM
     Indication: Product used for unknown indication
     Dosage: FOR 7 DAYS
     Route: 048
  8. SENOKOT [Concomitant]
     Active Substance: SENNOSIDES
     Indication: Product used for unknown indication
     Dosage: END DATE WOULD BE 06-JUN-2024
     Route: 048
     Dates: start: 20230607
  9. NEURONTIN [Concomitant]
     Active Substance: GABAPENTIN
     Dates: start: 20230713
  10. VITAMIN D2 [Concomitant]
     Active Substance: ERGOCALCIFEROL
     Dosage: 500000 UNITS
     Route: 048
     Dates: start: 20230405
  11. ASPIRIN [Concomitant]
     Active Substance: ASPIRIN
     Dosage: 500000 UNITS
     Route: 048
     Dates: start: 20230405
  12. ZOVIRAX [Concomitant]
     Active Substance: ACYCLOVIR
     Indication: Product used for unknown indication
     Dosage: MORNING AND EVENING
     Route: 048
     Dates: start: 20230717
  13. TYLENOL [Concomitant]
     Active Substance: ACETAMINOPHEN
     Indication: Product used for unknown indication
     Route: 048
     Dates: start: 20230503
  14. DULCOLAX (BISACODYL) [Concomitant]
     Active Substance: BISACODYL
     Indication: Product used for unknown indication
     Route: 048
  15. BACTROBAN [Concomitant]
     Active Substance: MUPIROCIN CALCIUM
     Indication: Product used for unknown indication
     Route: 061
  16. ADVIL [Concomitant]
     Active Substance: IBUPROFEN
     Indication: Pain
     Route: 048
  17. SENNOSIDES A AND B [Concomitant]
     Active Substance: SENNOSIDES A AND B
     Indication: Product used for unknown indication
     Route: 048

REACTIONS (6)
  - Constipation [Unknown]
  - Herpes zoster [Recovered/Resolved]
  - Fatigue [Unknown]
  - Thrombosis [Unknown]
  - Neutropenia [Unknown]
  - Deep vein thrombosis [Unknown]

NARRATIVE: CASE EVENT DATE: 20230704
